FAERS Safety Report 23376877 (Version 1)
Quarter: 2024Q1

REPORT INFORMATION
  Report Type: Spontaneous
  Country: GB (occurrence: GB)
  Receive Date: 20240108
  Receipt Date: 20240108
  Transmission Date: 20240410
  Serious: Yes (Other)
  Sender: FDA-Public Use
  Company Number: None

PATIENT

DRUGS (1)
  1. ROSUVASTATIN [Suspect]
     Active Substance: ROSUVASTATIN
     Route: 065

REACTIONS (4)
  - Amnesia [Not Recovered/Not Resolved]
  - Impaired quality of life [Unknown]
  - Confusional state [Not Recovered/Not Resolved]
  - Brain fog [Not Recovered/Not Resolved]
